FAERS Safety Report 8808493 (Version 1)
Quarter: 2012Q4

REPORT INFORMATION
  Report Type: Spontaneous
  Country: US (occurrence: None)
  Receive Date: 20120920
  Receipt Date: 20120920
  Transmission Date: 20130627
  Serious: Yes (Hospitalization, Other)
  Sender: FDA-Public Use
  Company Number: 1413204

PATIENT
  Age: 10 Year
  Sex: Female

DRUGS (10)
  1. ONDANSETRON [Suspect]
     Route: 042
  2. PROPOFOL [Suspect]
  3. SEVOFLURANE [Suspect]
     Dosage: respiratory
  4. ALFENTANIL [Suspect]
  5. FENTANYL [Concomitant]
  6. MORPHINE [Concomitant]
  7. KETOROLAC [Concomitant]
  8. DEXAMETHASONE [Concomitant]
  9. ACETAMINOPHEN W/CODEINE [Concomitant]
  10. ROPIVACAINE [Concomitant]

REACTIONS (2)
  - Nausea [None]
  - Dystonia [None]
